FAERS Safety Report 24960714 (Version 2)
Quarter: 2025Q2

REPORT INFORMATION
  Report Type: Spontaneous
  Country: DZ (occurrence: DZ)
  Receive Date: 20250212
  Receipt Date: 20250414
  Transmission Date: 20250716
  Serious: Yes (Death)
  Sender: AMGEN
  Company Number: DZ-AMGEN-DZASP2025026832

PATIENT
  Age: 30 Year
  Sex: Female

DRUGS (1)
  1. BLINCYTO [Suspect]
     Active Substance: BLINATUMOMAB
     Indication: B precursor type acute leukaemia
     Dosage: 9 MICROGRAM, QD, FIRST CYCLE
     Route: 040

REACTIONS (2)
  - Hepatic encephalopathy [Fatal]
  - Jaundice [Unknown]

NARRATIVE: CASE EVENT DATE: 20250126
